FAERS Safety Report 21643751 (Version 4)
Quarter: 2023Q1

REPORT INFORMATION
  Report Type: Report from Study
  Country: US (occurrence: US)
  Receive Date: 20221125
  Receipt Date: 20230331
  Transmission Date: 20230418
  Serious: Yes (Disabling, Other)
  Sender: FDA-Public Use
  Company Number: US-ABBVIE-4160314

PATIENT
  Age: 74 Year
  Sex: Female
  Weight: 92.986 kg

DRUGS (20)
  1. HUMIRA [Suspect]
     Active Substance: ADALIMUMAB
     Indication: Colitis ulcerative
     Route: 058
     Dates: start: 20200409
  2. HUMIRA [Suspect]
     Active Substance: ADALIMUMAB
     Route: 058
     Dates: start: 20200419, end: 20230311
  3. HUMIRA [Suspect]
     Active Substance: ADALIMUMAB
     Dosage: FIRST ADMIN DATE MAR 2023
     Route: 058
  4. TRESIBA [Concomitant]
     Active Substance: INSULIN DEGLUDEC
     Indication: Diabetes mellitus
  5. XIIDRA [Concomitant]
     Active Substance: LIFITEGRAST
     Indication: Sjogren^s syndrome
  6. Covid-19 vaccine [Concomitant]
     Indication: COVID-19 immunisation
     Dosage: 1ST DOSE?ONE IN ONCE
     Route: 030
     Dates: start: 20210315, end: 20210315
  7. ONDANSETRON [Concomitant]
     Active Substance: ONDANSETRON
     Indication: Nausea
     Dosage: AS NEEDED
  8. DULOXETINE [Concomitant]
     Active Substance: DULOXETINE
     Indication: Depression
     Dosage: 30 MG AND 60 MG
  9. NYSTATIN [Concomitant]
     Active Substance: NYSTATIN
     Indication: Musculoskeletal discomfort
  10. ATORVASTATIN [Concomitant]
     Active Substance: ATORVASTATIN
     Indication: Blood cholesterol increased
  11. GABAPENTIN [Concomitant]
     Active Substance: GABAPENTIN
     Indication: Pain in extremity
  12. LEVOTHYROXINE [Concomitant]
     Active Substance: LEVOTHYROXINE
     Indication: Thyroid disorder
  13. ALLOPURINOL [Concomitant]
     Active Substance: ALLOPURINOL
     Indication: Gout
  14. METOPROLOL [Concomitant]
     Active Substance: METOPROLOL
     Indication: Blood pressure measurement
  15. BAQSIMI [Concomitant]
     Active Substance: GLUCAGON
     Indication: Blood glucose decreased
  16. AMLODIPINE BESYLATE [Concomitant]
     Active Substance: AMLODIPINE BESYLATE
     Indication: Blood pressure measurement
  17. OMEPRAZOLE [Concomitant]
     Active Substance: OMEPRAZOLE
     Indication: Gastrooesophageal reflux disease
  18. NOVOLOG [Concomitant]
     Active Substance: INSULIN ASPART
     Indication: Blood glucose increased
  19. HYDROCHLOROTHIAZIDE [Concomitant]
     Active Substance: HYDROCHLOROTHIAZIDE
     Indication: Blood pressure measurement
  20. ESTRADIOL [Concomitant]
     Active Substance: ESTRADIOL
     Indication: Sjogren^s syndrome

REACTIONS (8)
  - Eye operation [Not Recovered/Not Resolved]
  - Back pain [Recovering/Resolving]
  - Gait disturbance [Recovering/Resolving]
  - Fall [Recovered/Resolved]
  - Cystitis [Unknown]
  - Spinal osteoarthritis [Not Recovered/Not Resolved]
  - Head injury [Recovered/Resolved]
  - Spinal operation [Unknown]

NARRATIVE: CASE EVENT DATE: 20220301
